FAERS Safety Report 7304701-7 (Version None)
Quarter: 2011Q1

REPORT INFORMATION
  Report Type: 
  Country: None (occurrence: None)
  Receive Date: 20110222
  Receipt Date: 20110210
  Transmission Date: 20110831
  Serious: No
  Sender: FDA-Public Use
  Company Number: US-PFIZER INC-US-WYE-H15706110

PATIENT
  Sex: Female

DRUGS (2)
  1. PRISTIQ [Suspect]
     Dosage: UNK
  2. ZOLOFT [Suspect]
     Dosage: UNK
     Route: 065

REACTIONS (2)
  - MIDDLE INSOMNIA [None]
  - INSOMNIA [None]
